FAERS Safety Report 23509459 (Version 3)
Quarter: 2024Q1

REPORT INFORMATION
  Report Type: Spontaneous
  Country: US (occurrence: US)
  Receive Date: 20240210
  Receipt Date: 20240308
  Transmission Date: 20240409
  Serious: No
  Sender: FDA-Public Use
  Company Number: US-TRAVERE-2024TVT00050

PATIENT
  Sex: Female

DRUGS (1)
  1. FILSPARI [Suspect]
     Active Substance: SPARSENTAN
     Indication: IgA nephropathy
     Route: 048
     Dates: end: 20240202

REACTIONS (5)
  - Headache [Unknown]
  - Blood pressure increased [Unknown]
  - Retching [Unknown]
  - Dyspnoea [Unknown]
  - Abdominal distension [None]
